FAERS Safety Report 5380874-0 (Version None)
Quarter: 2007Q3

REPORT INFORMATION
  Report Type: 
  Country: None (occurrence: None)
  Receive Date: 20070706
  Receipt Date: 20070626
  Transmission Date: 20080115
  Serious: Yes (Other)
  Sender: FDA-Public Use
  Company Number: FR-JNJFOC-20070606724

PATIENT
  Sex: Male
  Weight: 2.5 kg

DRUGS (4)
  1. EPITOMAX [Suspect]
     Indication: DRUG EXPOSURE DURING PREGNANCY
  2. TEGRETOL [Concomitant]
     Indication: DRUG EXPOSURE DURING PREGNANCY
  3. URBANYL [Concomitant]
     Indication: DRUG EXPOSURE DURING PREGNANCY
  4. SPECIAFOLDINE [Concomitant]
     Indication: DRUG EXPOSURE DURING PREGNANCY

REACTIONS (1)
  - PREMATURE BABY [None]
